FAERS Safety Report 8960174 (Version 2)
Quarter: 2013Q1

REPORT INFORMATION
  Report Type: Spontaneous
  Country: JP (occurrence: JP)
  Receive Date: 20121212
  Receipt Date: 20130208
  Transmission Date: 20140127
  Serious: No
  Sender: FDA-Public Use
  Company Number: PHHY2012JP113829

PATIENT
  Age: 83 Year
  Sex: 0

DRUGS (2)
  1. EXELON PATCH [Suspect]
     Dosage: UNK UKN, UNK
     Route: 062
  2. DIURETICS [Concomitant]
     Indication: CARDIAC FAILURE

REACTIONS (1)
  - Erythema [Unknown]
